FAERS Safety Report 18221338 (Version 1)
Quarter: 2020Q3

REPORT INFORMATION
  Report Type: Spontaneous
  Country: US (occurrence: US)
  Receive Date: 20200902
  Receipt Date: 20200902
  Transmission Date: 20201103
  Serious: No
  Sender: FDA-Public Use
  Company Number: US-AUROBINDO-AUR-APL-2019-045150

PATIENT
  Age: 36 Year
  Sex: Female
  Weight: 62.14 kg

DRUGS (1)
  1. ROPIVACAINE HYDROCHLORIDE INJECTION USP 0.5 % [Suspect]
     Active Substance: ROPIVACAINE HYDROCHLORIDE
     Indication: PAIN MANAGEMENT
     Dosage: ONE TIME
     Route: 065
     Dates: start: 20190624, end: 20190624

REACTIONS (4)
  - Dysgeusia [Recovered/Resolved]
  - Tinnitus [Recovered/Resolved]
  - Dizziness [Recovered/Resolved]
  - Nausea [Recovered/Resolved]

NARRATIVE: CASE EVENT DATE: 20190624
